FAERS Safety Report 5451876-0 (Version None)
Quarter: 2007Q3

REPORT INFORMATION
  Report Type: 
  Country: None (occurrence: None)
  Receive Date: 20070803
  Receipt Date: 20060830
  Transmission Date: 20080115
  Serious: Yes (Other)
  Sender: FDA-Public Use
  Company Number: 2006SP000962

PATIENT
  Age: 52 Year
  Sex: Male
  Weight: 90.2658 kg

DRUGS (11)
  1. INTERFERON ALFA-2B RECOMBINANT [Suspect]
     Indication: DRUG USE FOR UNKNOWN INDICATION
     Dosage: 10 MIU;SC
     Route: 058
     Dates: start: 20050926, end: 20060113
  2. PROCRIT [Suspect]
     Indication: ANAEMIA OF MALIGNANT DISEASE
     Dosage: 40000 IU;QW;SC, 60000 IU;QW;SC
     Route: 058
     Dates: start: 20051101, end: 20051220
  3. PROCRIT [Suspect]
     Indication: ANAEMIA OF MALIGNANT DISEASE
     Dosage: 40000 IU;QW;SC, 60000 IU;QW;SC
     Route: 058
     Dates: start: 20060103, end: 20060614
  4. COUMADIN [Concomitant]
  5. COMPAZINE [Concomitant]
  6. REGLAN [Concomitant]
  7. NEULASTA [Concomitant]
  8. PERCOCET [Concomitant]
  9. LAMICTAL [Concomitant]
  10. LITHIUM [Concomitant]
  11. RISPERIDONE [Concomitant]

REACTIONS (1)
  - ANAEMIA [None]
